FAERS Safety Report 16296916 (Version 1)
Quarter: 2019Q2

REPORT INFORMATION
  Report Type: Spontaneous
  Country: US (occurrence: US)
  Receive Date: 20190405
  Receipt Date: 20190405
  Transmission Date: 20190711
  Serious: No
  Sender: FDA-Public Use
  Company Number: None

PATIENT
  Age: 57 Year
  Sex: Male

DRUGS (1)
  1. TRUVADA [Suspect]
     Active Substance: EMTRICITABINE\TENOFOVIR DISOPROXIL FUMARATE
     Dosage: 200-300 DF DAILY ORAL
     Route: 048
     Dates: start: 201810

REACTIONS (2)
  - Skin swelling [None]
  - Hyperaesthesia [None]

NARRATIVE: CASE EVENT DATE: 20190405
